FAERS Safety Report 21485317 (Version 2)
Quarter: 2022Q4

REPORT INFORMATION
  Report Type: Spontaneous
  Country: US (occurrence: US)
  Receive Date: 20221020
  Receipt Date: 20221020
  Transmission Date: 20230113
  Serious: Yes (Death, Other)
  Sender: FDA-Public Use
  Company Number: US-PFIZER INC-PV202200079345

PATIENT
  Age: 55 Year
  Sex: Female

DRUGS (3)
  1. OXALIPLATIN [Suspect]
     Active Substance: OXALIPLATIN
     Indication: Cholangiocarcinoma
     Dosage: 2 CYCLES WITH HER LAST CYCLE ONE MONTH PRIOR
  2. LEUCOVORIN [Suspect]
     Active Substance: LEUCOVORIN
     Indication: Cholangiocarcinoma
     Dosage: 2 CYCLES WITH HER LAST CYCLE ONE MONTH PRIOR
  3. FLUOROURACIL [Suspect]
     Active Substance: FLUOROURACIL
     Indication: Cholangiocarcinoma
     Dosage: 2 CYCLES WITH HER LAST CYCLE ONE MONTH PRIOR

REACTIONS (1)
  - Pneumonitis [Fatal]
